FAERS Safety Report 8554222-9 (Version None)
Quarter: 2012Q3

REPORT INFORMATION
  Report Type: 
  Country: None (occurrence: None)
  Receive Date: 20120731
  Receipt Date: 20120719
  Transmission Date: 20120928
  Serious: Yes (Disabling)
  Sender: FDA-Public Use
  Company Number: US-009507513-1207USA007385

PATIENT

DRUGS (2)
  1. FOSAMAX [Suspect]
     Dosage: ORAL
     Dates: start: 20020701, end: 20090101
  2. FOSAMAX [Suspect]
     Dosage: ORAL
     Dates: start: 20020701, end: 20101001

REACTIONS (1)
  - FEMUR FRACTURE [None]
